FAERS Safety Report 4852354-X (Version None)
Quarter: 2005Q4

REPORT INFORMATION
  Report Type: 
  Country: None (occurrence: None)
  Receive Date: 20051209
  Receipt Date: 20051129
  Transmission Date: 20060501
  Serious: Yes (Other)
  Sender: FDA-Public Use
  Company Number: 2005127983

PATIENT
  Age: 80 Year
  Sex: Female
  Weight: 63.5 kg

DRUGS (5)
  1. ZITHROMAX [Suspect]
     Indication: LOWER RESPIRATORY TRACT INFECTION
     Dosage: 500 MG (250 MG, 2 IN 1 D); ORAL
     Route: 048
     Dates: start: 20050706, end: 20050708
  2. ATORVASTATIN CALCIUM [Suspect]
     Indication: BLOOD CHOLESTEROL
     Dosage: 20 MG (20 MG, 1 IN 1 D); ORAL
     Route: 048
     Dates: start: 20050429
  3. SOTALOL HCL [Suspect]
     Indication: ARRHYTHMIA
     Dosage: 120 MG (40 MG, 3 IN 1D); ORAL
     Route: 048
     Dates: start: 20030827
  4. BENDROFLUAZIDE [Concomitant]
  5. GAVISCON [Concomitant]

REACTIONS (4)
  - CHEST PAIN [None]
  - DRUG INTERACTION [None]
  - DRUG TOXICITY [None]
  - MYOPATHY [None]
